FAERS Safety Report 5122351-8 (Version None)
Quarter: 2006Q4

REPORT INFORMATION
  Report Type: 
  Country: None (occurrence: None)
  Receive Date: 20061004
  Receipt Date: 20060919
  Transmission Date: 20070319
  Serious: Yes (Other)
  Sender: FDA-Public Use
  Company Number: SPVI-2006-00934

PATIENT

DRUGS (2)
  1. CARBATROL [Suspect]
  2. EQUETRO [Concomitant]

REACTIONS (2)
  - DRUG INEFFECTIVE [None]
  - EPILEPSY [None]
